FAERS Safety Report 11717034 (Version 3)
Quarter: 2015Q4

REPORT INFORMATION
  Report Type: Spontaneous
  Country: US (occurrence: US)
  Receive Date: 20151104
  Receipt Date: 20151120
  Transmission Date: 20160304
  Serious: No
  Sender: FDA-Public Use
  Company Number: US-ELI_LILLY_AND_COMPANY-US201105000319

PATIENT
  Age: 60 Year
  Sex: Female

DRUGS (6)
  1. FORTEO [Suspect]
     Active Substance: TERIPARATIDE
     Dosage: 20 UG, QD
     Route: 065
  2. FORTEO [Suspect]
     Active Substance: TERIPARATIDE
     Dosage: 20 UG, QD
     Route: 065
  3. FORTEO [Suspect]
     Active Substance: TERIPARATIDE
     Dosage: 20 UG, QD
  4. FORTEO [Suspect]
     Active Substance: TERIPARATIDE
     Dosage: 20 UG, QD
     Route: 065
  5. FORTEO [Suspect]
     Active Substance: TERIPARATIDE
     Indication: OSTEOPOROSIS
     Dosage: 20 UG, QD
     Route: 065
     Dates: start: 20110419
  6. FORTEO [Suspect]
     Active Substance: TERIPARATIDE
     Dosage: 20 UG, QD
     Route: 065

REACTIONS (22)
  - Injection site bruising [Unknown]
  - Jaw disorder [Unknown]
  - Injection site rash [Not Recovered/Not Resolved]
  - Rash macular [Recovered/Resolved]
  - Drug dose omission [Recovered/Resolved]
  - Nerve compression [Unknown]
  - Injection site pruritus [Recovered/Resolved]
  - Rash [Recovered/Resolved]
  - Gastric mucosal lesion [Not Recovered/Not Resolved]
  - Visual impairment [Unknown]
  - Injection site pruritus [Not Recovered/Not Resolved]
  - Gastric disorder [Not Recovered/Not Resolved]
  - Malaise [Unknown]
  - Device failure [Unknown]
  - Rash macular [Not Recovered/Not Resolved]
  - Injection site pain [Recovered/Resolved]
  - Rash [Not Recovered/Not Resolved]
  - Pain [Unknown]
  - Nausea [Recovered/Resolved]
  - Pain in extremity [Unknown]
  - Injection site rash [Recovered/Resolved]
  - Injection site pain [Not Recovered/Not Resolved]

NARRATIVE: CASE EVENT DATE: 20110425
